FAERS Safety Report 17518387 (Version 5)
Quarter: 2020Q3

REPORT INFORMATION
  Report Type: Report from Study
  Country: None (occurrence: HU)
  Receive Date: 20200310
  Receipt Date: 20200813
  Transmission Date: 20201102
  Serious: Yes (Hospitalization, Other)
  Sender: FDA-Public Use
  Company Number: HU-ABBVIE-20K-076-3308456-00

PATIENT
  Age: 73 Year
  Sex: Male

DRUGS (13)
  1. STALEVO [Concomitant]
     Active Substance: CARBIDOPA\ENTACAPONE\LEVODOPA
     Indication: PARKINSON^S DISEASE
     Dosage: 200 MG LEVODOPA, 50 MG CARBIDOPA AND 200 MG ENTACAPONE
     Route: 048
  2. QUAMATEL [Concomitant]
     Active Substance: FAMOTIDINE
     Indication: PROPHYLAXIS
     Dosage: AT EVENING
     Route: 048
  3. DUODOPA [Suspect]
     Active Substance: CARBIDOPA\LEVODOPA
     Indication: PARKINSON^S DISEASE
     Dosage: MORNING DOSE: 5.5 ML; CONTINUOUS DOSE: 4.3 ML/HOUR; EVENING DOSE: 0.8 ML
     Route: 050
     Dates: start: 20160808, end: 20200324
  4. SYNCUMAR [Concomitant]
     Active Substance: ACENOCOUMAROL
     Indication: PROPHYLAXIS
     Dates: start: 2007
  5. FRONTIN [Concomitant]
     Active Substance: ALPRAZOLAM
     Indication: PRODUCT USED FOR UNKNOWN INDICATION
     Dosage: 0.25 MG, 0.5 MG, 1.0 MG.
     Route: 048
  6. CLEXANE [Concomitant]
     Active Substance: ENOXAPARIN SODIUM
     Indication: PRODUCT USED FOR UNKNOWN INDICATION
     Route: 058
  7. NITROGLYCERIN. [Concomitant]
     Active Substance: NITROGLYCERIN
     Indication: HYPERTENSION
     Route: 048
     Dates: start: 2007
  8. TRAMADOL. [Concomitant]
     Active Substance: TRAMADOL
     Indication: ARTHRALGIA
     Route: 048
     Dates: start: 2007
  9. CALMOLAN [Concomitant]
     Indication: PRODUCT USED FOR UNKNOWN INDICATION
     Dosage: 1.5 TABLET IN THE MORNING
     Route: 048
  10. AZILECT [Concomitant]
     Active Substance: RASAGILINE MESYLATE
     Indication: PARKINSON^S DISEASE
     Dosage: 1 TABLET AT MORNING
     Route: 048
  11. VEROSPIRON [Concomitant]
     Active Substance: SPIRONOLACTONE
     Indication: HYPERTENSION
     Dosage: 1 TABLET EVERY MORNING
     Dates: start: 2007
  12. VEROSPIRON [Concomitant]
     Active Substance: SPIRONOLACTONE
  13. DUODOPA [Suspect]
     Active Substance: CARBIDOPA\LEVODOPA

REACTIONS (8)
  - Device deployment issue [Not Recovered/Not Resolved]
  - Embedded device [Recovered/Resolved]
  - Confusional state [Not Recovered/Not Resolved]
  - Anaemia [Unknown]
  - Stoma site discharge [Recovered/Resolved]
  - Pyrexia [Recovered/Resolved]
  - Stoma site erythema [Recovered/Resolved]
  - Mobility decreased [Not Recovered/Not Resolved]

NARRATIVE: CASE EVENT DATE: 20200303
